FAERS Safety Report 23750955 (Version 1)
Quarter: 2024Q2

REPORT INFORMATION
  Report Type: Report from Study
  Country: FR (occurrence: FR)
  Receive Date: 20240417
  Receipt Date: 20240417
  Transmission Date: 20240716
  Serious: Yes (Death, Other)
  Sender: FDA-Public Use
  Company Number: FR-CELLTRION INC.-2024FR008789

PATIENT

DRUGS (5)
  1. INFLIXIMAB [Suspect]
     Active Substance: INFLIXIMAB
     Indication: Product used for unknown indication
     Dosage: UNK
     Dates: start: 20210210
  2. HUMIRA [Suspect]
     Active Substance: ADALIMUMAB
     Indication: Crohn^s disease
     Dosage: 160 MG
     Route: 058
     Dates: start: 20201118, end: 20201118
  3. HUMIRA [Suspect]
     Active Substance: ADALIMUMAB
     Dosage: 80 MG WEEK 2
     Route: 058
     Dates: start: 202012, end: 202012
  4. HUMIRA [Suspect]
     Active Substance: ADALIMUMAB
     Dosage: 40 MG, Q2WEEKS; WEEK 4
     Route: 058
     Dates: start: 202012, end: 202102
  5. AZATHIOPRINE [Concomitant]
     Active Substance: AZATHIOPRINE
     Indication: Product used for unknown indication
     Dosage: UNK
     Dates: start: 20210210

REACTIONS (8)
  - Gastrointestinal perforation [Fatal]
  - Ear neoplasm [Fatal]
  - Nasal neoplasm [Fatal]
  - Laryngeal neoplasm [Fatal]
  - General physical health deterioration [Fatal]
  - Lung disorder [Fatal]
  - Treatment failure [Fatal]
  - Sepsis [Fatal]
